FAERS Safety Report 8603062-0 (Version None)
Quarter: 2012Q3

REPORT INFORMATION
  Report Type: 
  Country: None (occurrence: None)
  Receive Date: 20120817
  Receipt Date: 20120712
  Transmission Date: 20120928
  Serious: No
  Sender: FDA-Public Use
  Company Number: US-GLAXOSMITHKLINE-A0984854A

PATIENT
  Age: 84 Year
  Sex: Male

DRUGS (1)
  1. VOTRIENT [Suspect]
     Indication: RENAL CANCER
     Dosage: 200MG AT NIGHT
     Route: 048
     Dates: start: 20120517

REACTIONS (1)
  - ADVERSE DRUG REACTION [None]
